FAERS Safety Report 5245637-5 (Version None)
Quarter: 2007Q1

REPORT INFORMATION
  Report Type: 
  Country: None (occurrence: None)
  Receive Date: 20070223
  Receipt Date: 20070216
  Transmission Date: 20070707
  Serious: Yes (Other)
  Sender: FDA-Public Use
  Company Number: US-ROXANE LABORATORIES, INC-2007-BP-02371RO

PATIENT
  Age: 66 Year
  Sex: Male

DRUGS (10)
  1. PREDNISONE TAB [Suspect]
     Indication: MULTIPLE MYELOMA
     Dosage: 10 MG/DAY
     Route: 048
     Dates: start: 20030710, end: 20031016
  2. WARFARIN SODIUM [Suspect]
     Indication: DEEP VEIN THROMBOSIS
     Dosage: 9 MG/WEEK
     Route: 048
     Dates: start: 20030710, end: 20031030
  3. THALIDOMIDE [Suspect]
     Indication: MULTIPLE MYELOMA
     Dosage: 300 MG/DAY
     Route: 048
     Dates: start: 20030201, end: 20041110
  4. ACETAMINOPHEN [Concomitant]
  5. AZITHROMYCIN [Concomitant]
     Dates: start: 20040129
  6. FENTANYL [Concomitant]
     Route: 061
     Dates: start: 20040302, end: 20040310
  7. FLUOXETINE [Concomitant]
     Dates: start: 20040827, end: 20041110
  8. GABAPENTIN [Concomitant]
     Dates: start: 20050305
  9. FAMCICLOVIR [Concomitant]
     Dates: start: 20050407, end: 20050417
  10. CHEMOTHERAPY [Concomitant]
     Dates: start: 20050603

REACTIONS (2)
  - DRUG INTERACTION [None]
  - INTERNATIONAL NORMALISED RATIO INCREASED [None]
